FAERS Safety Report 5635958-6 (Version None)
Quarter: 2008Q1

REPORT INFORMATION
  Report Type: 
  Country: None (occurrence: None)
  Receive Date: 20080224
  Receipt Date: 20080214
  Transmission Date: 20080703
  Serious: Yes (Hospitalization)
  Sender: FDA-Public Use
  Company Number: PHBS2008US02301

PATIENT
  Age: 77 Year
  Sex: Male
  Weight: 95 kg

DRUGS (6)
  1. ENTACAPONE [Suspect]
     Indication: PARKINSON'S DISEASE
     Dosage: 200 MG, QID
     Route: 065
  2. CARBIDOPA + LEVODOPA [Suspect]
     Indication: PARKINSON'S DISEASE
     Dosage: 25MG/100 MG, 1.5 DF FOUR TIMES/D
     Route: 048
  3. CARBIDOPA + LEVODOPA [Suspect]
     Dosage: 25 MG/250MG FOUR TIMES/D
     Route: 048
  4. PRAMIPEXOLE DIHYDROCHLORIDE [Suspect]
     Indication: PARKINSON'S DISEASE
     Dosage: 1.5 MG, TID
     Route: 065
  5. NUTREN [Suspect]
  6. PROSOURCE [Suspect]

REACTIONS (7)
  - DRUG INTERACTION [None]
  - FEEDING TUBE COMPLICATION [None]
  - GASTROSTOMY TUBE INSERTION [None]
  - MUSCLE RIGIDITY [None]
  - TRACHEOSTOMY [None]
  - TREMOR [None]
  - VISUAL FIELD DEFECT [None]
